FAERS Safety Report 5247330-1 (Version None)
Quarter: 2007Q1

REPORT INFORMATION
  Report Type: 
  Country: None (occurrence: None)
  Receive Date: 20070223
  Receipt Date: 20070223
  Transmission Date: 20070707
  Serious: Yes (Life-Threatening, Hospitalization)
  Sender: FDA-Public Use
  Company Number: None

PATIENT
  Age: 55 Year
  Sex: Male
  Weight: 97.2512 kg

DRUGS (3)
  1. ATORVASTATIN CALCIUM [Suspect]
     Indication: HYPERCHOLESTEROLAEMIA
     Dosage: 40MG  DAILY PO
     Route: 048
  2. LISINOPRIL [Concomitant]
  3. ATENOLOL [Concomitant]

REACTIONS (5)
  - BLOOD CREATINE PHOSPHOKINASE MB INCREASED [None]
  - DIZZINESS [None]
  - NAUSEA [None]
  - RHABDOMYOLYSIS [None]
  - WEIGHT DECREASED [None]
